FAERS Safety Report 16896692 (Version 1)
Quarter: 2019Q4

REPORT INFORMATION
  Report Type: Spontaneous
  Country: US (occurrence: US)
  Receive Date: 20191008
  Receipt Date: 20191008
  Transmission Date: 20200122
  Serious: No
  Sender: FDA-Public Use
  Company Number: US-009507513-1909USA013654

PATIENT
  Sex: Male

DRUGS (1)
  1. FOLLISTIM [Suspect]
     Active Substance: FOLLITROPIN
     Indication: INFERTILITY
     Dosage: STRENGHT: 900 IU/1.08 ML
     Route: 058
     Dates: start: 20181024, end: 20190417

REACTIONS (1)
  - Hormone level abnormal [Unknown]
